FAERS Safety Report 7789423-0 (Version None)
Quarter: 2011Q3

REPORT INFORMATION
  Report Type: 
  Country: None (occurrence: None)
  Receive Date: 20110930
  Receipt Date: 20110921
  Transmission Date: 20111222
  Serious: Yes (Other)
  Sender: FDA-Public Use
  Company Number: FR-EISAI INC-E3810-04971-SPO-FR

PATIENT
  Sex: Female

DRUGS (2)
  1. ALVERINE [Concomitant]
  2. RABEPRAZOLE SODIUM [Suspect]
     Indication: ACQUIRED OESOPHAGEAL WEB
     Route: 048
     Dates: start: 20110415

REACTIONS (23)
  - RENAL DISORDER [None]
  - MUSCLE SPASMS [None]
  - CHEST PAIN [None]
  - ABDOMINAL PAIN [None]
  - GINGIVAL ULCERATION [None]
  - LEUKOCYTOSIS [None]
  - ANXIETY [None]
  - MYALGIA [None]
  - CONSTIPATION [None]
  - WEIGHT DECREASED [None]
  - INSOMNIA [None]
  - CHILLS [None]
  - HEADACHE [None]
  - ARTHRALGIA [None]
  - DECREASED APPETITE [None]
  - RASH [None]
  - COMA [None]
  - VERTIGO [None]
  - TREMOR [None]
  - BACK PAIN [None]
  - VISUAL IMPAIRMENT [None]
  - DRY MOUTH [None]
  - PLATELET COUNT DECREASED [None]
